FAERS Safety Report 9050566 (Version 2)
Quarter: 2013Q2

REPORT INFORMATION
  Report Type: Report from Study
  Country: DE (occurrence: DE)
  Receive Date: 20130205
  Receipt Date: 20130518
  Transmission Date: 20140414
  Serious: Yes (Hospitalization)
  Sender: FDA-Public Use
  Company Number: DE-ABBOTT-13P-062-1043672-00

PATIENT
  Age: 37 Year
  Sex: Female
  Weight: 116 kg

DRUGS (1)
  1. HUMIRA [Suspect]
     Indication: PSORIASIS
     Dosage: 40 MG EOW
     Route: 050
     Dates: start: 20111118, end: 20130105

REACTIONS (3)
  - Atrial fibrillation [Recovered/Resolved]
  - Leiomyoma [Recovered/Resolved]
  - Hypertension [Unknown]
